FAERS Safety Report 7337121-X (Version None)
Quarter: 2011Q1

REPORT INFORMATION
  Report Type: 
  Country: None (occurrence: None)
  Receive Date: 20110224
  Receipt Date: 20110214
  Transmission Date: 20110831
  Serious: Yes (Other)
  Sender: FDA-Public Use
  Company Number: 8053407

PATIENT
  Sex: Male

DRUGS (3)
  1. LEVOTHYROXINE [Concomitant]
  2. CERTOLIZUMAB PEGOL (CERTOLIZUMAB PEGOL) [Suspect]
     Indication: CROHN'S DISEASE
     Dosage: (400 MG 1X/MONTH SUBCUTANEOUS)
     Route: 058
     Dates: start: 20080414
  3. BISOCARD /00802601/ [Concomitant]

REACTIONS (2)
  - LARYNGEAL CANCER [None]
  - PHARYNGITIS [None]
